FAERS Safety Report 9333687 (Version 1)
Quarter: 2013Q2

REPORT INFORMATION
  Report Type: Spontaneous
  Country: US (occurrence: US)
  Receive Date: 20130606
  Receipt Date: 20130606
  Transmission Date: 20140414
  Serious: No
  Sender: FDA-Public Use
  Company Number: US-AMGEN-USASP2012079739

PATIENT
  Age: 93 Year
  Sex: Female

DRUGS (9)
  1. PROLIA [Suspect]
     Indication: OSTEOPOROSIS
     Dosage: UNK UNK, ONE TIME DOSE
     Dates: start: 2010
  2. ZEAXANTHIN [Concomitant]
     Dosage: 20 MG, QD
  3. ENTERIC ASPIRIN [Concomitant]
     Dosage: UNK UNK, PRN
  4. STOOL SOFTENER [Concomitant]
     Dosage: UNK UNK, QD
  5. ATENOLOL [Concomitant]
     Dosage: UNK UNK, BID
  6. GABAPENTIN [Concomitant]
     Dosage: 100 MG, UNK
  7. DOXEPIN [Concomitant]
     Dosage: 10 MG, QD
  8. OMEPRAZOLE [Concomitant]
     Dosage: UNK UNK, QD
  9. KLOR-CON [Concomitant]
     Dosage: 10 MEQ, BID

REACTIONS (1)
  - Pain in jaw [Unknown]
